FAERS Safety Report 6252737-X (Version None)
Quarter: 2009Q2

REPORT INFORMATION
  Report Type: 
  Country: None (occurrence: None)
  Receive Date: 20090629
  Receipt Date: 20090629
  Transmission Date: 20091009
  Serious: Yes (Death)
  Sender: FDA-Public Use
  Company Number: None

PATIENT
  Age: 48 Year
  Sex: Male
  Weight: 124.7392 kg

DRUGS (1)
  1. METHADONE HCL [Suspect]
     Indication: BACK PAIN

REACTIONS (5)
  - FATIGUE [None]
  - MIDDLE INSOMNIA [None]
  - SELF-MEDICATION [None]
  - SNORING [None]
  - THERAPEUTIC AGENT TOXICITY [None]
